FAERS Safety Report 7119360-6 (Version None)
Quarter: 2010Q4

REPORT INFORMATION
  Report Type: 
  Country: None (occurrence: None)
  Receive Date: 20101123
  Receipt Date: 20101117
  Transmission Date: 20110411
  Serious: Yes (Hospitalization)
  Sender: FDA-Public Use
  Company Number: US-CELGENEUS-163-50794-10102899

PATIENT
  Sex: Male
  Weight: 75 kg

DRUGS (11)
  1. VIDAZA [Suspect]
     Indication: COLON CANCER STAGE IV
     Route: 058
     Dates: start: 20100824, end: 20101021
  2. ERLOTINIB HYDROCHLORIDE [Suspect]
     Indication: COLON CANCER STAGE IV
     Route: 048
     Dates: start: 20100824, end: 20101022
  3. MECLIZINE [Concomitant]
     Indication: DIZZINESS
     Route: 048
     Dates: start: 20101001
  4. DOXYCYCLINE HYCLATE [Concomitant]
     Route: 048
     Dates: start: 20100920, end: 20101005
  5. OXYCODONE HCL [Concomitant]
     Indication: PAIN
     Dosage: 1-2
     Route: 048
     Dates: start: 20100823
  6. LORAZEPAM [Concomitant]
     Route: 048
     Dates: start: 20100823
  7. LISINOPRIL [Concomitant]
     Route: 065
  8. PIOGLITAZONE [Concomitant]
     Route: 065
  9. GLIPIZIDE [Concomitant]
     Route: 065
  10. METFORMIN HCL [Concomitant]
     Route: 065
  11. PYRIDOXINE HCL [Concomitant]
     Route: 065

REACTIONS (1)
  - SMALL INTESTINAL OBSTRUCTION [None]
